FAERS Safety Report 16714752 (Version 2)
Quarter: 2019Q3

REPORT INFORMATION
  Report Type: Spontaneous
  Country: ES (occurrence: ES)
  Receive Date: 20190819
  Receipt Date: 20190828
  Transmission Date: 20191004
  Serious: Yes (Other)
  Sender: FDA-Public Use
  Company Number: PHHY2019ES191401

PATIENT
  Age: 72 Year
  Sex: Female

DRUGS (3)
  1. LOW MOLECULAR WEIGHT HEPARIN [Concomitant]
     Active Substance: UNSPECIFIED INGREDIENT
     Indication: DEEP VEIN THROMBOSIS
     Dosage: UNK
     Route: 065
  2. METRONIDAZOLE. [Suspect]
     Active Substance: METRONIDAZOLE
     Indication: CROHN^S DISEASE
     Dosage: 500 MG, Q12H
     Route: 048
  3. METRONIDAZOLE. [Suspect]
     Active Substance: METRONIDAZOLE
     Dosage: 500 MG, Q8H
     Route: 042

REACTIONS (17)
  - Hemiparesis [Unknown]
  - Gait disturbance [Recovering/Resolving]
  - Cerebral atrophy [Unknown]
  - Aphasia [Recovering/Resolving]
  - Hyperreflexia [Unknown]
  - Dysarthria [Unknown]
  - White matter lesion [Unknown]
  - Cogwheel rigidity [Unknown]
  - Encephalopathy [Unknown]
  - Multiple organ dysfunction syndrome [Unknown]
  - Depressed level of consciousness [Recovering/Resolving]
  - Product use in unapproved indication [Unknown]
  - Muscular weakness [Recovering/Resolving]
  - Dystonia [Recovered/Resolved]
  - Speech disorder [Unknown]
  - Somnolence [Unknown]
  - Bradyphrenia [Unknown]
